FAERS Safety Report 10581167 (Version 1)
Quarter: 2014Q4

REPORT INFORMATION
  Report Type: Spontaneous
  Country: CN (occurrence: None)
  Receive Date: 20141110
  Receipt Date: 20141110
  Transmission Date: 20150529
  Serious: Yes (Other)
  Sender: FDA-Public Use
  Company Number: CN2014GSK012665

PATIENT
  Age: 43 Year
  Sex: Female

DRUGS (1)
  1. SEROXAT [Suspect]
     Active Substance: PAROXETINE HYDROCHLORIDE
     Indication: MENTAL DISORDER
     Route: 048
     Dates: start: 20140308, end: 20140308

REACTIONS (8)
  - Hypersensitivity [None]
  - Tachypnoea [None]
  - Paraesthesia oral [None]
  - Blood pressure increased [None]
  - Respiratory distress [None]
  - Tachycardia [None]
  - Pruritus generalised [None]
  - Acne [None]

NARRATIVE: CASE EVENT DATE: 20140308
